FAERS Safety Report 21267035 (Version 1)
Quarter: 2022Q3

REPORT INFORMATION
  Report Type: Spontaneous
  Country: IN (occurrence: IN)
  Receive Date: 20220829
  Receipt Date: 20220829
  Transmission Date: 20221026
  Serious: Yes (Other)
  Sender: FDA-Public Use
  Company Number: IN-JAZZ-2022-IN-027769

PATIENT
  Age: 14 Year
  Sex: Male

DRUGS (4)
  1. ASPARAGINASE [Suspect]
     Active Substance: ASPARAGINASE
     Indication: Precursor T-lymphoblastic lymphoma/leukaemia
     Dosage: UNK
  2. VINCRISTINE [Suspect]
     Active Substance: VINCRISTINE
     Indication: Precursor T-lymphoblastic lymphoma/leukaemia
     Dosage: UNK
  3. DAUNORUBICIN [Suspect]
     Active Substance: DAUNORUBICIN
     Indication: Precursor T-lymphoblastic lymphoma/leukaemia
     Dosage: UNK
  4. CORTICOSTEROID NOS [Concomitant]
     Active Substance: CORTICOSTEROID NOS
     Dosage: UNK

REACTIONS (6)
  - Haemorrhagic infarction [Recovering/Resolving]
  - Hemiparesis [Recovering/Resolving]
  - Subarachnoid haemorrhage [Recovering/Resolving]
  - Cerebrovascular accident [Recovering/Resolving]
  - Partial seizures [Recovered/Resolved]
  - Cerebral venous thrombosis [Recovering/Resolving]
